FAERS Safety Report 16677502 (Version 1)
Quarter: 2019Q3

REPORT INFORMATION
  Report Type: Spontaneous
  Country: US (occurrence: US)
  Receive Date: 20190806
  Receipt Date: 20190806
  Transmission Date: 20191004
  Serious: Yes (Hospitalization, Disabling)
  Sender: FDA-Public Use
  Company Number: None

PATIENT
  Age: 41 Year
  Sex: Female
  Weight: 53.1 kg

DRUGS (4)
  1. DOXYCYCLINE HYCLATE 100 MG TABLETS [Suspect]
     Active Substance: DOXYCYCLINE HYCLATE
     Indication: OROPHARYNGEAL PAIN
     Dosage: ?          QUANTITY:20 TABLET(S);?
     Route: 048
     Dates: start: 20190608, end: 20190612
  2. DOXYCYCLINE HYCLATE 100 MG TABLETS [Suspect]
     Active Substance: DOXYCYCLINE HYCLATE
     Indication: PYREXIA
     Dosage: ?          QUANTITY:20 TABLET(S);?
     Route: 048
     Dates: start: 20190608, end: 20190612
  3. VITAFLORA PROBIOTICS [Concomitant]
  4. ADVIL [Concomitant]
     Active Substance: IBUPROFEN

REACTIONS (25)
  - Mouth ulceration [None]
  - Blister [None]
  - Rash [None]
  - Abdominal pain upper [None]
  - Paraesthesia [None]
  - Tremor [None]
  - Back pain [None]
  - Urinary retention [None]
  - Nausea [None]
  - Arthralgia [None]
  - Headache [None]
  - Genital disorder female [None]
  - Vision blurred [None]
  - Rash erythematous [None]
  - Gait disturbance [None]
  - Arthritis [None]
  - Abdominal pain [None]
  - Hypoaesthesia [None]
  - Constipation [None]
  - Decreased appetite [None]
  - Flank pain [None]
  - Peripheral swelling [None]
  - Pain of skin [None]
  - Myalgia [None]
  - Skin burning sensation [None]

NARRATIVE: CASE EVENT DATE: 20190613
